FAERS Safety Report 25359351 (Version 2)
Quarter: 2025Q3

REPORT INFORMATION
  Report Type: Report from Study
  Country: BR (occurrence: BR)
  Receive Date: 20250526
  Receipt Date: 20250730
  Transmission Date: 20251020
  Serious: Yes (Hospitalization)
  Sender: NOVARTIS
  Company Number: BR-002147023-NVSC2025BR061258

PATIENT
  Age: 42 Year
  Sex: Female
  Weight: 90 kg

DRUGS (6)
  1. KESIMPTA [Suspect]
     Active Substance: OFATUMUMAB
     Indication: Multiple sclerosis
     Route: 058
     Dates: start: 20241223
  2. KESIMPTA [Suspect]
     Active Substance: OFATUMUMAB
     Route: 065
     Dates: start: 20250318
  3. KESIMPTA [Suspect]
     Active Substance: OFATUMUMAB
     Route: 065
     Dates: start: 20250513
  4. VITAMIN D [Concomitant]
     Active Substance: VITAMIN D NOS
     Indication: Vitamin D deficiency
     Dosage: 10000 IU, QD (TABLET)
     Route: 065
  5. OMEGA 3 [Concomitant]
     Active Substance: CAPSAICIN
     Indication: Fatigue
     Dosage: 1 DOSAGE FORM, QD
     Route: 065
  6. OMEGA 3 [Concomitant]
     Active Substance: CAPSAICIN
     Indication: Brain fog

REACTIONS (11)
  - Malaise [Recovered/Resolved]
  - Injection site pain [Recovered/Resolved]
  - Abdominal pain [Recovered/Resolved]
  - Weight increased [Not Recovered/Not Resolved]
  - Adverse drug reaction [Unknown]
  - Nausea [Recovered/Resolved]
  - Blood prolactin increased [Unknown]
  - Discomfort [Recovered/Resolved]
  - Poor quality sleep [Unknown]
  - Headache [Recovered/Resolved]
  - Pyrexia [Unknown]

NARRATIVE: CASE EVENT DATE: 20250501
